FAERS Safety Report 14903815 (Version 2)
Quarter: 2018Q2

REPORT INFORMATION
  Report Type: Spontaneous
  Country: BR (occurrence: BR)
  Receive Date: 20180516
  Receipt Date: 20180622
  Transmission Date: 20180711
  Serious: Yes (Other)
  Sender: FDA-Public Use
  Company Number: BR-ELI_LILLY_AND_COMPANY-BR201804004736

PATIENT
  Age: 59 Year
  Sex: Female

DRUGS (1)
  1. FORTEO [Suspect]
     Active Substance: TERIPARATIDE
     Indication: OSTEOPOROSIS
     Dosage: UNK, UNKNOWN
     Route: 065
     Dates: start: 20180406

REACTIONS (23)
  - Feeling abnormal [Unknown]
  - Feeling cold [Unknown]
  - Suffocation feeling [Recovered/Resolved]
  - Dyspnoea [Recovered/Resolved]
  - Depression [Recovered/Resolved]
  - Chest discomfort [Unknown]
  - Somnolence [Recovered/Resolved]
  - Fatigue [Unknown]
  - Injection site pruritus [Recovering/Resolving]
  - Retching [Unknown]
  - Abdominal distension [Unknown]
  - Injection site bruising [Recovering/Resolving]
  - Injection site pain [Recovering/Resolving]
  - Dizziness [Unknown]
  - Malaise [Recovered/Resolved]
  - Feeling hot [Unknown]
  - Suicidal ideation [Recovered/Resolved]
  - Injection site haematoma [Not Recovered/Not Resolved]
  - Vomiting [Unknown]
  - Abdominal pain upper [Unknown]
  - Hyperhidrosis [Unknown]
  - Presyncope [Unknown]
  - Asthenia [Unknown]

NARRATIVE: CASE EVENT DATE: 20180409
